FAERS Safety Report 22052602 (Version 2)
Quarter: 2023Q2

REPORT INFORMATION
  Report Type: Report from Study
  Country: FR (occurrence: FR)
  Receive Date: 20230302
  Receipt Date: 20230519
  Transmission Date: 20230721
  Serious: Yes (Death)
  Sender: FDA-Public Use
  Company Number: FR-ARGENX-2023-ARGX-FR000600

PATIENT

DRUGS (1)
  1. EFGARTIGIMOD ALFA [Suspect]
     Active Substance: EFGARTIGIMOD ALFA
     Indication: Myasthenia gravis
     Dosage: UNK
     Route: 042
     Dates: start: 20221116, end: 20221207

REACTIONS (1)
  - Death [Fatal]

NARRATIVE: CASE EVENT DATE: 20230223
